FAERS Safety Report 18491736 (Version 1)
Quarter: 2020Q4

REPORT INFORMATION
  Report Type: Spontaneous
  Country: FR (occurrence: FR)
  Receive Date: 20201111
  Receipt Date: 20201111
  Transmission Date: 20210114
  Serious: Yes (Life-Threatening, Hospitalization)
  Sender: FDA-Public Use
  Company Number: FR-ELI_LILLY_AND_COMPANY-FR202011002247

PATIENT
  Age: 45 Year
  Sex: Female
  Weight: 90 kg

DRUGS (3)
  1. CARBOPLATIN ACCORD [Concomitant]
     Active Substance: CARBOPLATIN
     Indication: LUNG ADENOCARCINOMA
     Route: 042
     Dates: start: 20200929, end: 20200929
  2. ALIMTA [Suspect]
     Active Substance: PEMETREXED DISODIUM
     Indication: LUNG ADENOCARCINOMA
     Dosage: 950 MG, UNKNOWN
     Route: 042
     Dates: start: 20200929, end: 20200929
  3. KEYTRUDA [Suspect]
     Active Substance: PEMBROLIZUMAB
     Indication: LUNG ADENOCARCINOMA
     Dosage: 200 MG, UNKNOWN
     Route: 042
     Dates: start: 20200929, end: 20200929

REACTIONS (2)
  - Lung disorder [Recovering/Resolving]
  - Pulmonary alveolar haemorrhage [Not Recovered/Not Resolved]

NARRATIVE: CASE EVENT DATE: 20201007
